FAERS Safety Report 4394229-9 (Version None)
Quarter: 2004Q3

REPORT INFORMATION
  Report Type: 
  Country: None (occurrence: None)
  Receive Date: 20040712
  Receipt Date: 20040701
  Transmission Date: 20050211
  Serious: Yes (Other)
  Sender: FDA-Public Use
  Company Number: PHFR2004GB02681

PATIENT
  Sex: Male

DRUGS (1)
  1. LAMISIL [Suspect]
     Route: 065
     Dates: start: 20040616

REACTIONS (2)
  - BLOOD SODIUM DECREASED [None]
  - BLOOD SODIUM INCREASED [None]
